FAERS Safety Report 17435497 (Version 1)
Quarter: 2020Q1

REPORT INFORMATION
  Report Type: Spontaneous
  Country: IE (occurrence: IE)
  Receive Date: 20200219
  Receipt Date: 20200219
  Transmission Date: 20200409
  Serious: Yes (Other)
  Sender: FDA-Public Use
  Company Number: IE-ROCHE-2549493

PATIENT
  Age: 82 Year
  Sex: Male

DRUGS (8)
  1. MST [MORPHINE SULFATE] [Suspect]
     Active Substance: MORPHINE SULFATE
     Indication: PRODUCT USED FOR UNKNOWN INDICATION
     Route: 065
     Dates: start: 201811
  2. NINTEDANIB [Suspect]
     Active Substance: NINTEDANIB
     Indication: PRODUCT USED FOR UNKNOWN INDICATION
     Route: 065
  3. ALPRAZOLAM. [Suspect]
     Active Substance: ALPRAZOLAM
     Indication: PRODUCT USED FOR UNKNOWN INDICATION
     Dosage: PRN (AS NEEDED)
     Route: 065
  4. ESBRIET [Suspect]
     Active Substance: PIRFENIDONE
     Indication: IDIOPATHIC PULMONARY FIBROSIS
     Dosage: X 4 MONTHS
     Route: 048
     Dates: start: 201811
  5. ORAMORPH SR SUSTAINED RELEASE [Suspect]
     Active Substance: MORPHINE SULFATE
     Indication: PRODUCT USED FOR UNKNOWN INDICATION
     Dosage: BD (TWICE A DAY), PRN (AS NEEDED)
     Route: 065
     Dates: start: 201811
  6. OXYCODONE [Concomitant]
     Active Substance: OXYCODONE
  7. MIDAZOLAM HYDROCHLORIDE. [Concomitant]
     Active Substance: MIDAZOLAM HYDROCHLORIDE
  8. LEVOMEPROMAZINE [Concomitant]
     Active Substance: LEVOMEPROMAZINE

REACTIONS (12)
  - Cough [Unknown]
  - Frustration tolerance decreased [Unknown]
  - Pyrexia [Unknown]
  - Dyspnoea exertional [Unknown]
  - Constipation [Unknown]
  - Dyspnoea at rest [Unknown]
  - Chest pain [Unknown]
  - Delirium [Unknown]
  - Decreased appetite [Unknown]
  - Anxiety [Unknown]
  - Depressed mood [Unknown]
  - Fatigue [Unknown]

NARRATIVE: CASE EVENT DATE: 201811
